FAERS Safety Report 7743343-6 (Version None)
Quarter: 2011Q3

REPORT INFORMATION
  Report Type: 
  Country: None (occurrence: None)
  Receive Date: 20110826
  Receipt Date: 20110815
  Transmission Date: 20111222
  Serious: Yes (Hospitalization, Other)
  Sender: FDA-Public Use
  Company Number: 2010SP012023

PATIENT
  Age: 37 Year
  Sex: Female
  Weight: 96.1626 kg

DRUGS (7)
  1. FIORICET [Concomitant]
  2. TOPAMAX [Concomitant]
  3. NUVARING [Suspect]
     Indication: HORMONE THERAPY
     Dosage: VAG
     Route: 067
     Dates: start: 20071201, end: 20090101
  4. NUVARING [Suspect]
     Indication: CONTRACEPTION
     Dosage: VAG
     Route: 067
     Dates: start: 20071201, end: 20090101
  5. DIFLUCAN [Concomitant]
  6. IMPLANON [Suspect]
     Indication: CONTRACEPTION
     Dates: start: 20090101
  7. ZOCOR [Concomitant]

REACTIONS (28)
  - PULMONARY EMBOLISM [None]
  - THROMBOSIS [None]
  - WEIGHT INCREASED [None]
  - LIMB DISCOMFORT [None]
  - VULVOVAGINAL CANDIDIASIS [None]
  - DIZZINESS [None]
  - UNEVALUABLE EVENT [None]
  - PLEURISY [None]
  - RADICULITIS CERVICAL [None]
  - MIGRAINE [None]
  - PNEUMONIA [None]
  - OVARIAN CYST [None]
  - COMPLICATION OF DEVICE INSERTION [None]
  - DYSPNOEA [None]
  - VAGINITIS BACTERIAL [None]
  - INTERNATIONAL NORMALISED RATIO DECREASED [None]
  - HYPERGLYCAEMIA [None]
  - ANAEMIA [None]
  - INFECTION [None]
  - HYPOAESTHESIA [None]
  - TREATMENT NONCOMPLIANCE [None]
  - FIBRIN D DIMER INCREASED [None]
  - ROTATOR CUFF SYNDROME [None]
  - SYNCOPE [None]
  - MALAISE [None]
  - PAIN [None]
  - FATIGUE [None]
  - TENDON DISORDER [None]
